FAERS Safety Report 5353575-2 (Version None)
Quarter: 2007Q2

REPORT INFORMATION
  Report Type: 
  Country: None (occurrence: None)
  Receive Date: 20070612
  Receipt Date: 20070603
  Transmission Date: 20071010
  Serious: Yes (Death)
  Sender: FDA-Public Use
  Company Number: IL-NOVOPROD-263799

PATIENT
  Age: 12 Day
  Sex: Male

DRUGS (2)
  1. NOVOSEVEN [Suspect]
     Indication: HAEMORRHAGE
     Dosage: 1.2 MG, UNK
     Route: 042
     Dates: start: 20070515, end: 20070515
  2. NOVOSEVEN [Suspect]

REACTIONS (1)
  - DRUG INEFFECTIVE [None]
